FAERS Safety Report 4414225-2 (Version None)
Quarter: 2004Q3

REPORT INFORMATION
  Report Type: 
  Country: None (occurrence: None)
  Receive Date: 20040728
  Receipt Date: 20040721
  Transmission Date: 20050211
  Serious: Yes (Disabling)
  Sender: FDA-Public Use
  Company Number: THQ2004A00074

PATIENT
  Age: 73 Year
  Sex: Female

DRUGS (1)
  1. LANSOPRAZOLE [Suspect]
     Indication: DYSPEPSIA
     Dosage: SEE IMAGE
     Route: 048
     Dates: start: 20020601

REACTIONS (5)
  - CEREBRAL INFARCTION [None]
  - CEREBRAL ISCHAEMIA [None]
  - GAIT DISTURBANCE [None]
  - HEMIANOPIA [None]
  - VISUAL FIELD DEFECT [None]
